FAERS Safety Report 9880049 (Version 1)
Quarter: 2014Q1

REPORT INFORMATION
  Report Type: Spontaneous
  Country: US (occurrence: US)
  Receive Date: 20140207
  Receipt Date: 20140207
  Transmission Date: 20141002
  Serious: No
  Sender: FDA-Public Use
  Company Number: US-BIOGENIDEC-2014BI009656

PATIENT
  Sex: Male

DRUGS (1)
  1. TYSABRI [Suspect]
     Indication: MULTIPLE SCLEROSIS
     Route: 042
     Dates: start: 20130222, end: 20131001

REACTIONS (7)
  - Oral disorder [Recovered/Resolved]
  - Oral infection [Recovered/Resolved]
  - Dysphagia [Recovered/Resolved]
  - Adverse event [Recovered/Resolved]
  - Immune system disorder [Recovered/Resolved]
  - Skin lesion [Recovered/Resolved]
  - Malaise [Recovered/Resolved]
